FAERS Safety Report 18845599 (Version 2)
Quarter: 2021Q1

REPORT INFORMATION
  Report Type: Spontaneous
  Country: US (occurrence: US)
  Receive Date: 20210204
  Receipt Date: 20210302
  Transmission Date: 20210419
  Serious: No
  Sender: FDA-Public Use
  Company Number: US-LUNDBECK-DKLU3027230

PATIENT
  Age: 11 Month
  Sex: Female
  Weight: 9.8 kg

DRUGS (1)
  1. SABRIL [Suspect]
     Active Substance: VIGABATRIN
     Indication: INFANTILE SPASMS
     Route: 048
     Dates: end: 20210127

REACTIONS (3)
  - Insomnia [Unknown]
  - Product dose omission issue [Unknown]
  - Withdrawal syndrome [Unknown]
